FAERS Safety Report 9310781 (Version 4)
Quarter: 2014Q2

REPORT INFORMATION
  Report Type: Spontaneous
  Country: TR (occurrence: TR)
  Receive Date: 20130528
  Receipt Date: 20140414
  Transmission Date: 20141212
  Serious: Yes (Other)
  Sender: FDA-Public Use
  Company Number: TR-ELI_LILLY_AND_COMPANY-TR201305007646

PATIENT
  Age: 12 Year
  Sex: Female
  Weight: 35 kg

DRUGS (2)
  1. ATOMOXETINE HYDROCHLORIDE [Suspect]
     Indication: ATTENTION DEFICIT/HYPERACTIVITY DISORDER
     Dosage: 1.2 MG/KG, QD
  2. ATOMOXETINE HYDROCHLORIDE [Suspect]
     Dosage: 0.5 MG/KG, QD

REACTIONS (2)
  - Homicidal ideation [Recovered/Resolved]
  - Mania [Recovered/Resolved]
